FAERS Safety Report 17441921 (Version 2)
Quarter: 2021Q1

REPORT INFORMATION
  Report Type: Spontaneous
  Country: CA (occurrence: CA)
  Receive Date: 20200220
  Receipt Date: 20210319
  Transmission Date: 20210419
  Serious: Yes (Hospitalization, Other)
  Sender: FDA-Public Use
  Company Number: CA-SHIRE-CA202005700

PATIENT
  Age: 37 Year
  Sex: Female
  Weight: 70 kg

DRUGS (5)
  1. GAMMAGARD LIQUID [Suspect]
     Active Substance: HUMAN IMMUNOGLOBULIN G
     Indication: IMMUNE THROMBOCYTOPENIA
     Dosage: 70 GRAM, QD
     Route: 042
  2. GAMMAGARD LIQUID [Suspect]
     Active Substance: HUMAN IMMUNOGLOBULIN G
     Dosage: 70 GRAM, QD
     Route: 042
     Dates: start: 20190808, end: 20190809
  3. GAMMAGARD LIQUID [Suspect]
     Active Substance: HUMAN IMMUNOGLOBULIN G
     Dosage: 70 GRAM, QD
     Route: 042
     Dates: start: 20190808, end: 20190809
  4. GAMMAGARD LIQUID [Suspect]
     Active Substance: HUMAN IMMUNOGLOBULIN G
     Dosage: 70 GRAM, QD
     Route: 042
     Dates: start: 20190808, end: 20190809
  5. GAMMAGARD LIQUID [Suspect]
     Active Substance: HUMAN IMMUNOGLOBULIN G
     Dosage: 70 GRAM, QD
     Route: 042
     Dates: start: 20190808, end: 20190809

REACTIONS (5)
  - Headache [Recovered/Resolved]
  - Meningitis aseptic [Recovered/Resolved]
  - Haemolysis [Recovered/Resolved]
  - Haemorrhage intracranial [Recovered/Resolved]
  - Nuchal rigidity [Recovered/Resolved]

NARRATIVE: CASE EVENT DATE: 20190810
